FAERS Safety Report 25657053 (Version 2)
Quarter: 2025Q3

REPORT INFORMATION
  Report Type: Report from Study
  Country: US (occurrence: US)
  Receive Date: 20250807
  Receipt Date: 20250811
  Transmission Date: 20251020
  Serious: No
  Sender: BRISTOL-MYERS SQUIBB COMPANY
  Company Number: US-BRISTOL-MYERS SQUIBB COMPANY-2025-110263

PATIENT
  Age: 64 Year
  Sex: Male

DRUGS (2)
  1. CAMZYOS [Suspect]
     Active Substance: MAVACAMTEN
     Indication: Hypertrophic cardiomyopathy
     Route: 048
     Dates: start: 202507
  2. CAMZYOS [Suspect]
     Active Substance: MAVACAMTEN
     Route: 048

REACTIONS (2)
  - Abdominal pain upper [Unknown]
  - Product dose omission in error [Unknown]
